FAERS Safety Report 13620169 (Version 3)
Quarter: 2017Q3

REPORT INFORMATION
  Report Type: Report from Study
  Country: US (occurrence: US)
  Receive Date: 20170607
  Receipt Date: 20170712
  Transmission Date: 20171127
  Serious: Yes (Death)
  Sender: FDA-Public Use
  Company Number: US-ROCHE-1944831

PATIENT
  Sex: Male

DRUGS (21)
  1. OXALIPLATIN. [Concomitant]
     Active Substance: OXALIPLATIN
     Route: 042
  2. CARAFATE [Concomitant]
     Active Substance: SUCRALFATE
     Dosage: AT BEDTIME
     Route: 048
  3. ONDANSETRON [Concomitant]
     Active Substance: ONDANSETRON
     Route: 048
  4. CARAFATE [Concomitant]
     Active Substance: SUCRALFATE
     Dosage: AT BEDTIME
     Route: 048
  5. PRILOSEC [Concomitant]
     Active Substance: OMEPRAZOLE MAGNESIUM
     Route: 061
  6. DEXAMETHASONE SODIUM PHOSPHATE. [Concomitant]
     Active Substance: DEXAMETHASONE SODIUM PHOSPHATE
     Route: 042
  7. ELIQUIS [Concomitant]
     Active Substance: APIXABAN
     Route: 048
  8. FENTANYL. [Concomitant]
     Active Substance: FENTANYL
     Route: 062
  9. LIDOCAINE. [Concomitant]
     Active Substance: LIDOCAINE
     Route: 061
  10. AVASTIN [Suspect]
     Active Substance: BEVACIZUMAB
     Route: 065
     Dates: start: 20170501
  11. LORAZEPAM. [Concomitant]
     Active Substance: LORAZEPAM
     Route: 048
  12. PALONOSETRON HCL [Concomitant]
     Active Substance: PALONOSETRON HYDROCHLORIDE
     Route: 042
  13. OMEPRAZOLE. [Concomitant]
     Active Substance: OMEPRAZOLE
     Route: 048
  14. ZOFRAN [Concomitant]
     Active Substance: ONDANSETRON HYDROCHLORIDE
     Dosage: AS NEEDED
     Route: 048
  15. FLUOROURACIL. [Concomitant]
     Active Substance: FLUOROURACIL
     Route: 042
  16. OXYCODONE HYDROCHLORIDE. [Concomitant]
     Active Substance: OXYCODONE HYDROCHLORIDE
     Dosage: 4 TABLETS; AS NEEDED
     Route: 048
  17. LEUCOVORIN CALCIUM. [Concomitant]
     Active Substance: LEUCOVORIN CALCIUM
     Route: 042
  18. SODIUM CHLORIDE. [Concomitant]
     Active Substance: SODIUM CHLORIDE
     Route: 042
  19. AVASTIN [Suspect]
     Active Substance: BEVACIZUMAB
     Indication: COLON CANCER
     Route: 065
  20. BACLOFEN. [Concomitant]
     Active Substance: BACLOFEN
     Route: 048
  21. PROCHLORPERAZINE MALEATE. [Concomitant]
     Active Substance: PROCHLORPERAZINE MALEATE
     Dosage: AS NEEDED
     Route: 048

REACTIONS (24)
  - Death [Fatal]
  - Dizziness [Unknown]
  - Depression [Unknown]
  - Red blood cell count decreased [Unknown]
  - Dysuria [Unknown]
  - Oedema peripheral [Unknown]
  - Mean platelet volume decreased [Unknown]
  - Vision blurred [Unknown]
  - Dry mouth [Unknown]
  - Haematocrit decreased [Unknown]
  - Red cell distribution width increased [Unknown]
  - Nausea [Unknown]
  - Dry skin [Unknown]
  - Headache [Unknown]
  - Pallor [Unknown]
  - Haemoglobin decreased [Unknown]
  - Hypertension [Unknown]
  - Fatigue [Unknown]
  - Anxiety [Unknown]
  - Dehydration [Unknown]
  - Blood bilirubin increased [Unknown]
  - Emotional disorder [Unknown]
  - Vomiting [Unknown]
  - White blood cell count increased [Unknown]
